FAERS Safety Report 16423647 (Version 3)
Quarter: 2019Q3

REPORT INFORMATION
  Report Type: Report from Study
  Country: None (occurrence: US)
  Receive Date: 20190613
  Receipt Date: 20190905
  Transmission Date: 20191004
  Serious: Yes (Hospitalization, Other)
  Sender: FDA-Public Use
  Company Number: US-ABBVIE-19K-163-2813648-00

PATIENT
  Sex: Male

DRUGS (3)
  1. HUMIRA [Suspect]
     Active Substance: ADALIMUMAB
     Route: 058
     Dates: start: 20190812
  2. HUMIRA [Suspect]
     Active Substance: ADALIMUMAB
     Indication: CROHN^S DISEASE
     Route: 058
     Dates: start: 20190527, end: 20190527
  3. HUMIRA [Suspect]
     Active Substance: ADALIMUMAB
     Route: 058
     Dates: start: 2019, end: 20190712

REACTIONS (17)
  - Decreased appetite [Unknown]
  - Impaired work ability [Unknown]
  - Intestinal obstruction [Recovering/Resolving]
  - Sepsis [Recovering/Resolving]
  - Diarrhoea [Unknown]
  - Constipation [Unknown]
  - Gastrointestinal inflammation [Unknown]
  - Abdominal adhesions [Unknown]
  - Malaise [Unknown]
  - Weight decreased [Unknown]
  - Intestinal perforation [Unknown]
  - Abdominal pain [Unknown]
  - Pancreatitis [Unknown]
  - Insomnia [Unknown]
  - Depressed mood [Unknown]
  - Vomiting [Unknown]
  - Escherichia infection [Unknown]

NARRATIVE: CASE EVENT DATE: 2019
